FAERS Safety Report 5707360-X (Version None)
Quarter: 2008Q2

REPORT INFORMATION
  Report Type: 
  Country: None (occurrence: None)
  Receive Date: 20080416
  Receipt Date: 20080407
  Transmission Date: 20081010
  Serious: No
  Sender: FDA-Public Use
  Company Number: -BAXTER-2008BH003214

PATIENT
  Age: 28 Year
  Sex: Male

DRUGS (1)
  1. LACTATED RINGER'S [Suspect]
     Indication: DRUG USE FOR UNKNOWN INDICATION
     Dosage: DOSE UNIT:CUBIC CENTIMETER
     Route: 042
     Dates: start: 20080404, end: 20080404

REACTIONS (5)
  - BURNING SENSATION [None]
  - CHEST DISCOMFORT [None]
  - COUGH [None]
  - FEELING COLD [None]
  - FLUSHING [None]
